FAERS Safety Report 17574962 (Version 3)
Quarter: 2023Q4

REPORT INFORMATION
  Report Type: Spontaneous
  Country: US (occurrence: US)
  Receive Date: 20200324
  Receipt Date: 20231017
  Transmission Date: 20240110
  Serious: Yes (Hospitalization, Other)
  Sender: FDA-Public Use
  Company Number: US-GILEAD-2020-0456098

PATIENT
  Age: 63 Year
  Sex: Male
  Weight: 90.7 kg

DRUGS (41)
  1. ATRIPLA [Suspect]
     Active Substance: EFAVIRENZ\EMTRICITABINE\TENOFOVIR DISOPROXIL FUMARATE
     Indication: HIV infection
     Dosage: UNK
     Route: 048
     Dates: start: 200812, end: 20111212
  2. ALLOPURINOL [Concomitant]
     Active Substance: ALLOPURINOL
  3. VITAMINS NOS [Concomitant]
     Active Substance: VITAMINS
  4. EPIVIR [Concomitant]
     Active Substance: LAMIVUDINE
  5. EPZICOM [Concomitant]
     Active Substance: ABACAVIR SULFATE\LAMIVUDINE
  6. GENVOYA [Concomitant]
     Active Substance: COBICISTAT\ELVITEGRAVIR\EMTRICITABINE\TENOFOVIR ALAFENAMIDE FUMARATE
  7. NORVIR [Concomitant]
     Active Substance: RITONAVIR
  8. PREZISTA [Concomitant]
     Active Substance: DARUNAVIR ETHANOLATE
  9. TIVICAY [Concomitant]
     Active Substance: DOLUTEGRAVIR SODIUM
  10. ZIAGEN [Concomitant]
     Active Substance: ABACAVIR SULFATE
  11. AMLODIPINE BESYLATE [Concomitant]
     Active Substance: AMLODIPINE BESYLATE
  12. EXFORGE [Concomitant]
     Active Substance: AMLODIPINE BESYLATE\VALSARTAN
  13. LISINOPRIL [Concomitant]
     Active Substance: LISINOPRIL
  14. LOSARTAN [Concomitant]
     Active Substance: LOSARTAN
  15. NAPROXEN [Concomitant]
     Active Substance: NAPROXEN
  16. OXYCODONE [Concomitant]
     Active Substance: OXYCODONE
  17. MINOXIDIL [Concomitant]
     Active Substance: MINOXIDIL
  18. HYDRALAZINE [Concomitant]
     Active Substance: HYDRALAZINE HYDROCHLORIDE
  19. CARVEDILOL [Concomitant]
     Active Substance: CARVEDILOL
  20. OMEPRAZOLE [Concomitant]
     Active Substance: OMEPRAZOLE
  21. FUROSEMIDE [Concomitant]
     Active Substance: FUROSEMIDE
  22. LORATADINE [Concomitant]
     Active Substance: LORATADINE
  23. NITROGLYCERIN [Concomitant]
     Active Substance: NITROGLYCERIN
  24. LOTRISONE [Concomitant]
     Active Substance: BETAMETHASONE DIPROPIONATE\CLOTRIMAZOLE
  25. ALAWAY [Concomitant]
     Active Substance: KETOTIFEN FUMARATE
  26. AZITHROMYCIN [Concomitant]
     Active Substance: AZITHROMYCIN
  27. DOXYCYCLINE HYCLATE [Concomitant]
     Active Substance: DOXYCYCLINE HYCLATE
  28. AUGMENTIN [Concomitant]
     Active Substance: AMOXICILLIN\CLAVULANATE POTASSIUM
  29. DUONEB [Concomitant]
     Active Substance: ALBUTEROL SULFATE\IPRATROPIUM BROMIDE
  30. ROCEPHIN [Concomitant]
     Active Substance: CEFTRIAXONE SODIUM
  31. SODIUM CHLORIDE [Concomitant]
     Active Substance: SODIUM CHLORIDE
  32. LEVOFLOXACIN [Concomitant]
     Active Substance: LEVOFLOXACIN
  33. FOLIC ACID [Concomitant]
     Active Substance: FOLIC ACID
  34. METAMIZOLE SODIUM [Concomitant]
     Active Substance: METAMIZOLE SODIUM
  35. METRONIDAZOLE [Concomitant]
     Active Substance: METRONIDAZOLE
  36. VANCOCIN [Concomitant]
     Active Substance: VANCOMYCIN HYDROCHLORIDE
  37. THIAMINE [Concomitant]
     Active Substance: THIAMINE
  38. CLONIDINE [Concomitant]
     Active Substance: CLONIDINE
  39. ENALAPRIL [Concomitant]
     Active Substance: ENALAPRIL
  40. CEPHALEXIN HYDROCHLORIDE [Concomitant]
     Active Substance: CEPHALEXIN HYDROCHLORIDE
  41. TRAMADOL [Concomitant]
     Active Substance: TRAMADOL\TRAMADOL HYDROCHLORIDE

REACTIONS (14)
  - Renal injury [Unknown]
  - Psychotic disorder [Recovered/Resolved]
  - Chronic kidney disease [Not Recovered/Not Resolved]
  - Renal failure [Not Recovered/Not Resolved]
  - Anxiety [Not Recovered/Not Resolved]
  - Depression [Not Recovered/Not Resolved]
  - Pain [Not Recovered/Not Resolved]
  - Emotional distress [Not Recovered/Not Resolved]
  - Anhedonia [Not Recovered/Not Resolved]
  - Economic problem [Unknown]
  - Osteopenia [Not Recovered/Not Resolved]
  - Hypertension [Not Recovered/Not Resolved]
  - Gout [Not Recovered/Not Resolved]
  - Anaemia [Not Recovered/Not Resolved]

NARRATIVE: CASE EVENT DATE: 20110101
